FAERS Safety Report 6000104-6 (Version None)
Quarter: 2008Q4

REPORT INFORMATION
  Report Type: 
  Country: None (occurrence: None)
  Receive Date: 20081215
  Receipt Date: 20081204
  Transmission Date: 20090506
  Serious: Yes (Other)
  Sender: FDA-Public Use
  Company Number: US-JNJCH-2008056424

PATIENT
  Sex: Female

DRUGS (1)
  1. PURELL ORIGINAL [Suspect]
     Indication: EYE IRRITATION
     Dosage: TEXT:^FEW DROPS^ ONCE
     Route: 047
     Dates: start: 20081204, end: 20081204

REACTIONS (2)
  - OFF LABEL USE [None]
  - VISION BLURRED [None]
